FAERS Safety Report 25028490 (Version 1)
Quarter: 2025Q1

REPORT INFORMATION
  Report Type: Spontaneous
  Country: US (occurrence: US)
  Receive Date: 20250302
  Receipt Date: 20250302
  Transmission Date: 20250409
  Serious: No
  Sender: SANOFI AVENTIS
  Company Number: US-SA-2025SA058301

PATIENT
  Age: 9 Year
  Sex: Male
  Weight: 30.45 kg

DRUGS (10)
  1. FABRAZYME [Suspect]
     Active Substance: AGALSIDASE BETA
     Indication: Fabry^s disease
     Dosage: 300 MG, QOW
     Route: 042
     Dates: start: 20140315
  2. ACETAMINOPHEN [Concomitant]
     Active Substance: ACETAMINOPHEN
  3. EPINEPHRINE [Concomitant]
     Active Substance: EPINEPHRINE
  4. FAMOTIDINE [Concomitant]
     Active Substance: FAMOTIDINE
  5. STERILE WATER [Concomitant]
     Active Substance: WATER
  6. ONDANSETRON [Concomitant]
     Active Substance: ONDANSETRON
  7. SODIUM CHLORIDE [Concomitant]
     Active Substance: SODIUM CHLORIDE
  8. METHYLPHENIDATE [Concomitant]
     Active Substance: METHYLPHENIDATE
  9. DIPHENHYDRAMINE [Concomitant]
     Active Substance: DIPHENHYDRAMINE
  10. SODIUM CHLORIDE [Concomitant]
     Active Substance: SODIUM CHLORIDE

REACTIONS (1)
  - Illness [Unknown]
